FAERS Safety Report 23774931 (Version 1)
Quarter: 2024Q2

REPORT INFORMATION
  Report Type: Spontaneous
  Country: GB (occurrence: GB)
  Receive Date: 20240423
  Receipt Date: 20240423
  Transmission Date: 20240716
  Serious: Yes (Disabling, Other)
  Sender: FDA-Public Use
  Company Number: GB-PFIZER INC-199971220PHANOV

PATIENT
  Age: 57 Year
  Sex: Female
  Weight: 65 kg

DRUGS (3)
  1. CYCLOPHOSPHAMIDE [Suspect]
     Active Substance: CYCLOPHOSPHAMIDE
     Dosage: 250.0 MG/M2
     Route: 042
     Dates: start: 19971209, end: 19980324
  2. METHOTREXATE SODIUM [Suspect]
     Active Substance: METHOTREXATE SODIUM
     Dosage: 40.0 MG/M2
     Route: 042
     Dates: start: 19971209, end: 19980324
  3. FLUOROURACIL [Suspect]
     Active Substance: FLUOROURACIL
     Dosage: 600.0 MG/M2
     Route: 042
     Dates: start: 19971208, end: 19980324

REACTIONS (4)
  - Blindness [Not Recovered/Not Resolved]
  - Retinopathy [Unknown]
  - Retinal haemorrhage [Unknown]
  - Macular scar [Unknown]

NARRATIVE: CASE EVENT DATE: 19971201
